FAERS Safety Report 6252452-2 (Version None)
Quarter: 2009Q3

REPORT INFORMATION
  Report Type: 
  Country: None (occurrence: None)
  Receive Date: 20090701
  Receipt Date: 20090629
  Transmission Date: 20100115
  Serious: Yes (Death, Life-Threatening, Hospitalization)
  Sender: FDA-Public Use
  Company Number: DE-BRISTOL-MYERS SQUIBB COMPANY-14535439

PATIENT
  Age: 69 Year
  Sex: Male
  Weight: 66 kg

DRUGS (9)
  1. TAXOL [Suspect]
     Indication: OROPHARYNGEAL CANCER STAGE UNSPECIFIED
     Dosage: FIRST CYCLE
     Route: 042
     Dates: start: 20080917
  2. CARBOPLATIN [Concomitant]
     Dosage: FIRST CYCLE
     Dates: start: 20080917
  3. AMLODIPINE [Concomitant]
     Indication: HYPERTENSION
     Route: 048
  4. AMOXICILLIN AND CLAVULANATE POTASSIUM [Concomitant]
     Indication: BACTERIAL INFECTION
     Dosage: 1DF=875/125MG
     Route: 048
  5. PANTOPRAZOLE SODIUM [Concomitant]
     Route: 048
  6. TORSEMIDE [Concomitant]
     Indication: CARDIAC FAILURE
     Route: 048
  7. DEXAMETHASONE [Concomitant]
     Indication: PREMEDICATION
  8. CLEMASTINE FUMARATE [Concomitant]
     Indication: PREMEDICATION
     Dosage: 1 DF = 1 AMPOULE
  9. TAGAMET [Concomitant]
     Indication: PREMEDICATION

REACTIONS (4)
  - CARDIAC DISORDER [None]
  - HYPERSENSITIVITY [None]
  - HYPOXIC ENCEPHALOPATHY [None]
  - MYOCLONUS [None]
